FAERS Safety Report 6708724-8 (Version None)
Quarter: 2010Q2

REPORT INFORMATION
  Report Type: 
  Country: None (occurrence: None)
  Receive Date: 20100504
  Receipt Date: 20100419
  Transmission Date: 20101027
  Serious: Yes (Other)
  Sender: FDA-Public Use
  Company Number: CA-RANBAXY-2010US-33335

PATIENT

DRUGS (5)
  1. CLARITHROMYCIN [Suspect]
     Indication: RESPIRATORY TRACT INFECTION
     Dosage: UNK, UNK
     Route: 065
  2. FLUOXETINE [Suspect]
     Indication: DEPRESSION
     Dosage: 80 MG, UNK AT BEDTIME(HS)
     Route: 065
  3. FLUOXETINE [Suspect]
     Indication: SLEEP APNOEA SYNDROME
  4. NITRAZEPAM [Suspect]
     Indication: DEPRESSION
     Route: 065
  5. NITRAZEPAM [Suspect]
     Indication: SLEEP APNOEA SYNDROME

REACTIONS (4)
  - DELIRIUM [None]
  - DRUG INTERACTION [None]
  - DRUG TOXICITY [None]
  - PSYCHOTIC DISORDER [None]
